FAERS Safety Report 15299986 (Version 2)
Quarter: 2018Q3

REPORT INFORMATION
  Report Type: Spontaneous
  Country: DE (occurrence: DE)
  Receive Date: 20180821
  Receipt Date: 20180829
  Transmission Date: 20181010
  Serious: Yes (Death)
  Sender: FDA-Public Use
  Company Number: DE-009507513-1808DEU006127

PATIENT
  Age: 62 Year
  Sex: Male

DRUGS (17)
  1. DEXAMETHASONE. [Concomitant]
     Active Substance: DEXAMETHASONE
     Dosage: DAILY DOSE: 4 MG MILLGRAM(S) EVERY DAYS
  2. DEKRISTOL [Concomitant]
     Active Substance: CHOLECALCIFEROL
     Dosage: DAILY DOSE: 40 IU INTERNATIONAL UNIT(S) EVERY WEEKS
  3. MEROPENEM. [Concomitant]
     Active Substance: MEROPENEM
     Indication: PNEUMONIA
     Dosage: DAILY DOSE: 3 G GRAM(S) EVERY DAYS
     Route: 042
  4. ISOPTIN [Concomitant]
     Active Substance: VERAPAMIL HYDROCHLORIDE
     Dosage: 1?0?2, 120 MG
  5. PEMBROLIZUMAB. [Suspect]
     Active Substance: PEMBROLIZUMAB
     Indication: NON-SMALL CELL LUNG CANCER
     Dosage: 200 MG MILLGRAM(S) EVERY 2 MONTHS
     Route: 042
     Dates: start: 2018
  6. SPIRIVA [Concomitant]
     Active Substance: TIOTROPIUM BROMIDE MONOHYDRATE
     Dosage: DAILY DOSE: 1 DF DOSAGE FORM EVERY DAYS
     Route: 055
  7. TOREM [Concomitant]
     Active Substance: TORSEMIDE
     Dosage: DAILY DOSE: 20 MG MILLGRAM(S) EVERY DAYS
  8. COTRIM [Concomitant]
     Active Substance: SULFAMETHOXAZOLE\TRIMETHOPRIM
     Indication: PNEUMOCYSTIS JIROVECII PNEUMONIA
     Dosage: DAILY DOSE: 20 DF DOSAGE FORM EVERY DAYS
     Route: 042
  9. SOLU?DECORTIN [Concomitant]
     Active Substance: PREDNISOLONE SODIUM SUCCINATE
     Indication: PULMONARY FIBROSIS
     Dosage: DAILY DOSE: 100 MG MILLGRAM(S) EVERY DAYS
     Route: 042
  10. NOVALGIN (DIPYRONE) [Concomitant]
     Active Substance: DIPYRONE
     Dosage: DAILY DOSE: 120 GTT DROP(S) EVERY DAYS
  11. FOSFOMYCIN [Concomitant]
     Active Substance: FOSFOMYCIN
     Indication: PNEUMONIA
     Dosage: DAILY DOSE: 15 G GRAM(S) EVERY DAYS
     Route: 042
  12. LYRICA [Concomitant]
     Active Substance: PREGABALIN
     Dosage: DAILY DOSE: 150 MG MILLGRAM(S) EVERY DAYS
  13. ERGENYL [Concomitant]
     Active Substance: VALPROIC ACID
     Dosage: 750MG?0?1000MG
  14. FOLSAN [Concomitant]
     Active Substance: FOLIC ACID
     Dosage: DAILY DOSE: 5 MG MILLGRAM(S) EVERY DAYS
  15. PANTOZOL [Concomitant]
     Active Substance: PANTOPRAZOLE SODIUM
     Dosage: DAILY DOSE: 40 MG MILLGRAM(S) EVERY DAYS
  16. FENTANYL. [Concomitant]
     Active Substance: FENTANYL
     Dosage: DAILY DOSE: 1 DF DOSAGE FORM EVERY 3 DAYS
     Route: 062
  17. BUDENOFALK [Concomitant]
     Active Substance: BUDESONIDE
     Dosage: DAILY DOSE: 9 MG MILLGRAM(S) EVERY DAYS

REACTIONS (7)
  - Pulmonary fibrosis [Fatal]
  - Cystic lung disease [Fatal]
  - Pneumocystis jirovecii pneumonia [Fatal]
  - Superinfection bacterial [Fatal]
  - Interstitial lung disease [Fatal]
  - Lung infection [Fatal]
  - Pneumonia [Fatal]

NARRATIVE: CASE EVENT DATE: 20180115
